FAERS Safety Report 6583344-7 (Version None)
Quarter: 2010Q1

REPORT INFORMATION
  Report Type: 
  Country: None (occurrence: None)
  Receive Date: 20100216
  Receipt Date: 20100210
  Transmission Date: 20100710
  Serious: Yes (Hospitalization)
  Sender: FDA-Public Use
  Company Number: AT-SANOFI-AVENTIS-2010SA008036

PATIENT
  Sex: Male
  Weight: 82 kg

DRUGS (1)
  1. LANTUS [Suspect]
     Indication: TYPE 2 DIABETES MELLITUS
     Route: 058
     Dates: start: 20040101, end: 20070101

REACTIONS (3)
  - ARRHYTHMIA [None]
  - LOSS OF CONSCIOUSNESS [None]
  - NAUSEA [None]
